FAERS Safety Report 5808740-4 (Version None)
Quarter: 2008Q3

REPORT INFORMATION
  Report Type: 
  Country: None (occurrence: None)
  Receive Date: 20080714
  Receipt Date: 20080709
  Transmission Date: 20090109
  Serious: Yes (Disabling)
  Sender: FDA-Public Use
  Company Number: JP-BRISTOL-MYERS SQUIBB COMPANY-14245120

PATIENT
  Age: 45 Year
  Sex: Female

DRUGS (6)
  1. TAXOL [Suspect]
     Indication: NON-SMALL CELL LUNG CANCER
     Dosage: THERAPY DATES: 22MAY2008 TO 19JUN2008.2 DAYS. ADMINISTRATION COMPLETED FOR TAXOL.
     Route: 041
     Dates: start: 20080522, end: 20080522
  2. PARAPLATIN [Suspect]
     Indication: LUNG NEOPLASM MALIGNANT
     Route: 041
     Dates: start: 20080522, end: 20080522
  3. NASEA [Concomitant]
     Route: 041
     Dates: start: 20080522, end: 20080522
  4. DECADRON [Concomitant]
     Route: 041
     Dates: start: 20080522, end: 20080522
  5. RESTAMIN [Concomitant]
     Route: 048
     Dates: start: 20080522, end: 20080522
  6. RANITIDINE HCL [Concomitant]
     Route: 048
     Dates: start: 20080522, end: 20080522

REACTIONS (1)
  - CEREBRAL INFARCTION [None]
